FAERS Safety Report 8358631-2 (Version None)
Quarter: 2012Q2

REPORT INFORMATION
  Report Type: 
  Country: None (occurrence: None)
  Receive Date: 20120514
  Receipt Date: 20120509
  Transmission Date: 20120825
  Serious: Yes (Life-Threatening, Hospitalization)
  Sender: FDA-Public Use
  Company Number: CH-ROCHE-1068609

PATIENT
  Age: 80 Year
  Sex: Female

DRUGS (7)
  1. LUCENTIS [Suspect]
     Route: 050
     Dates: end: 20111020
  2. LUCENTIS [Suspect]
     Route: 050
  3. LUCENTIS [Suspect]
     Indication: AGE-RELATED MACULAR DEGENERATION
     Route: 050
     Dates: start: 20081208
  4. HYDROCORTISONE [Suspect]
     Indication: TEMPORAL ARTERITIS
     Route: 048
  5. LUCENTIS [Suspect]
     Route: 050
  6. LUCENTIS [Suspect]
     Route: 050
  7. LUCENTIS [Suspect]
     Route: 050

REACTIONS (1)
  - PULMONARY EMBOLISM [None]
